FAERS Safety Report 5420636-9 (Version None)
Quarter: 2007Q3

REPORT INFORMATION
  Report Type: 
  Country: None (occurrence: None)
  Receive Date: 20070821
  Receipt Date: 20070808
  Transmission Date: 20080115
  Serious: Yes (Life-Threatening, Hospitalization, Other)
  Sender: FDA-Public Use
  Company Number: AU-BAYER-200714755GDS

PATIENT
  Age: 78 Year
  Sex: Male

DRUGS (10)
  1. APROTININ [Suspect]
     Indication: PROPHYLAXIS
     Route: 042
  2. APROTININ [Suspect]
     Route: 042
  3. APROTININ [Suspect]
     Route: 041
  4. PERINDOPRIL ERBUMINE [Concomitant]
     Indication: DRUG USE FOR UNKNOWN INDICATION
     Route: 065
  5. PROPRANOLOL [Concomitant]
     Indication: DRUG USE FOR UNKNOWN INDICATION
     Route: 065
  6. GLYBURIDE [Concomitant]
     Indication: DRUG USE FOR UNKNOWN INDICATION
     Route: 065
  7. METFORMIN HCL [Concomitant]
     Indication: DRUG USE FOR UNKNOWN INDICATION
     Route: 065
  8. MIDAZOLAM HCL [Concomitant]
     Indication: SEDATION
     Route: 042
  9. FENTANYL [Concomitant]
     Indication: ANAESTHESIA
     Route: 042
  10. ROCURONIUM BROMIDE [Concomitant]
     Indication: HYPOTONIA
     Route: 042

REACTIONS (3)
  - CORONARY ARTERY THROMBOSIS [None]
  - ELECTROCARDIOGRAM ST SEGMENT ELEVATION [None]
  - MYOCARDIAL ISCHAEMIA [None]
